FAERS Safety Report 5921662-3 (Version None)
Quarter: 2008Q3

REPORT INFORMATION
  Report Type: 
  Country: None (occurrence: None)
  Receive Date: 20080909
  Receipt Date: 20080317
  Transmission Date: 20090109
  Serious: Yes (Hospitalization)
  Sender: FDA-Public Use
  Company Number: 163-20785-07021120

PATIENT
  Age: 68 Year
  Sex: Male

DRUGS (8)
  1. THALOMID [Suspect]
     Indication: MULTIPLE MYELOMA
     Dosage: 200 MG, 2 IN 1 D, ORAL ; 200 MG, QOD, ORAL
     Route: 048
     Dates: end: 20070227
  2. THALOMID [Suspect]
     Indication: MULTIPLE MYELOMA
     Dosage: 200 MG, 2 IN 1 D, ORAL ; 200 MG, QOD, ORAL
     Route: 048
     Dates: start: 20070117
  3. PAXIL [Concomitant]
  4. DI-ATRO (LOMOTIL) (TABLETS) [Concomitant]
  5. LASIX [Concomitant]
  6. LIPITOR [Concomitant]
  7. POTASSIUM CHLORIDE [Concomitant]
  8. DECADRON [Concomitant]

REACTIONS (9)
  - ANAEMIA [None]
  - HYPERTROPHIC CARDIOMYOPATHY [None]
  - HYPOTENSION [None]
  - LEUKOPENIA [None]
  - NEUTROPENIA [None]
  - PNEUMONIA [None]
  - PULMONARY EMBOLISM [None]
  - SYNCOPE [None]
  - THROMBOCYTOPENIA [None]
